FAERS Safety Report 9931748 (Version 2)
Quarter: 2014Q2

REPORT INFORMATION
  Report Type: Spontaneous
  Country: JP (occurrence: JP)
  Receive Date: 20140228
  Receipt Date: 20140411
  Transmission Date: 20141212
  Serious: Yes (Death, Hospitalization)
  Sender: FDA-Public Use
  Company Number: JP-ROCHE-1355296

PATIENT
  Age: 64 Year
  Sex: Female
  Weight: 32 kg

DRUGS (7)
  1. ACTEMRA [Suspect]
     Indication: RHEUMATOID VASCULITIS
     Dosage: DOSAGE IS UNCERTAIN.
     Route: 041
  2. PROGRAF [Suspect]
     Indication: RHEUMATOID VASCULITIS
     Route: 048
     Dates: start: 20080527
  3. LIPITOR [Suspect]
     Indication: PRODUCT USED FOR UNKNOWN INDICATION
     Route: 048
     Dates: start: 200512
  4. TAKEPRON [Suspect]
     Indication: PRODUCT USED FOR UNKNOWN INDICATION
     Route: 048
     Dates: start: 200512
  5. VOLTAREN SR [Suspect]
     Indication: RHEUMATOID VASCULITIS
     Route: 048
     Dates: start: 200512
  6. DEPAS [Suspect]
     Indication: PRODUCT USED FOR UNKNOWN INDICATION
     Route: 048
     Dates: start: 200512
  7. PREDNISOLONE [Suspect]
     Indication: RHEUMATOID VASCULITIS
     Route: 048
     Dates: start: 200512

REACTIONS (2)
  - Small intestinal ulcer haemorrhage [Fatal]
  - Intestinal obstruction [Unknown]
